FAERS Safety Report 9671485 (Version 3)
Quarter: 2014Q2

REPORT INFORMATION
  Report Type: Spontaneous
  Country: IT (occurrence: IT)
  Receive Date: 20131106
  Receipt Date: 20140407
  Transmission Date: 20141212
  Serious: Yes (Hospitalization)
  Sender: FDA-Public Use
  Company Number: IT-TEVA-442297ISR

PATIENT
  Age: 64 Year
  Sex: Female
  Weight: 70 kg

DRUGS (2)
  1. CISPLATINO PFIZER [Suspect]
     Indication: LUNG NEOPLASM MALIGNANT
     Route: 042
     Dates: start: 20130228, end: 20130418
  2. CISPLATINO PFIZER [Suspect]
     Route: 042
     Dates: start: 20130418, end: 20130509

REACTIONS (1)
  - Gastrointestinal disorder [Recovered/Resolved]
